FAERS Safety Report 23470267 (Version 1)
Quarter: 2024Q1

REPORT INFORMATION
  Report Type: Spontaneous
  Country: US (occurrence: None)
  Receive Date: 20240201
  Receipt Date: 20240201
  Transmission Date: 20240410
  Serious: No
  Sender: FDA-Public Use
  Company Number: None

PATIENT
  Age: 12 Year

DRUGS (1)
  1. DUPIXENT [Suspect]
     Active Substance: DUPILUMAB
     Indication: Eosinophilic oesophagitis
     Dosage: OTHER FREQUENCY : Q2WEEKS;?
     Route: 058

REACTIONS (4)
  - Joint swelling [None]
  - Joint swelling [None]
  - Joint swelling [None]
  - Therapy interrupted [None]

NARRATIVE: CASE EVENT DATE: 20230201
